FAERS Safety Report 4500547-3 (Version None)
Quarter: 2004Q4

REPORT INFORMATION
  Report Type: 
  Country: None (occurrence: None)
  Receive Date: 20041112
  Receipt Date: 20041112
  Transmission Date: 20050328
  Serious: No
  Sender: FDA-Public Use
  Company Number: None

PATIENT
  Sex: Female
  Weight: 115.2136 kg

DRUGS (2)
  1. ENBREL [Suspect]
     Indication: RHEUMATOID ARTHRITIS
     Dosage: 25 MG SQ  2X/WK
     Route: 058
     Dates: start: 20001205, end: 20041006
  2. METHOTREXATE [Concomitant]

REACTIONS (4)
  - COUGH [None]
  - LOBAR PNEUMONIA [None]
  - PYREXIA [None]
  - TUBERCULOSIS [None]
